FAERS Safety Report 9029959 (Version 3)
Quarter: 2013Q1

REPORT INFORMATION
  Report Type: Spontaneous
  Country: BE (occurrence: BE)
  Receive Date: 20130125
  Receipt Date: 20130307
  Transmission Date: 20140127
  Serious: Yes (Hospitalization)
  Sender: FDA-Public Use
  Company Number: BE-BIOGENIDEC-2013BI004912

PATIENT
  Age: 58 Year
  Sex: Female

DRUGS (2)
  1. AVONEX [Suspect]
     Indication: PRODUCT USED FOR UNKNOWN INDICATION
     Route: 030
     Dates: start: 20130103, end: 20130103
  2. ACETYLSALICYLIC ACID [Concomitant]
     Indication: ABSCESS LIMB

REACTIONS (1)
  - Cellulitis [Recovered/Resolved]
